FAERS Safety Report 6455467-4 (Version None)
Quarter: 2009Q4

REPORT INFORMATION
  Report Type: 
  Country: None (occurrence: None)
  Receive Date: 20091125
  Receipt Date: 20091116
  Transmission Date: 20100525
  Serious: Yes (Other)
  Sender: FDA-Public Use
  Company Number: FR-ABBOTT-09P-056-0608830-00

PATIENT
  Age: 74 Year
  Sex: Male

DRUGS (1)
  1. TARKA [Suspect]
     Indication: HYPERTENSION
     Route: 048
     Dates: start: 20051001

REACTIONS (3)
  - BRADYCARDIA [None]
  - CEREBRAL HYPOPERFUSION [None]
  - FALL [None]
